FAERS Safety Report 7103519-8 (Version None)
Quarter: 2010Q4

REPORT INFORMATION
  Report Type: 
  Country: None (occurrence: None)
  Receive Date: 20101115
  Receipt Date: 20101108
  Transmission Date: 20110411
  Serious: Yes (Other)
  Sender: FDA-Public Use
  Company Number: US-TEVA-254479USA

PATIENT

DRUGS (1)
  1. LISINOPRIL [Suspect]

REACTIONS (1)
  - PERICARDIAL EFFUSION [None]
